FAERS Safety Report 7563001-0 (Version None)
Quarter: 2011Q2

REPORT INFORMATION
  Report Type: 
  Country: None (occurrence: None)
  Receive Date: 20110615
  Receipt Date: 20110531
  Transmission Date: 20111010
  Serious: Yes (Other)
  Sender: FDA-Public Use
  Company Number: 2009S1006343

PATIENT
  Age: 51 Year
  Sex: Male
  Weight: 72.1219 kg

DRUGS (4)
  1. SODIUM PHOSPHATE MONOBASIC MONOHYDRATE AND NAPO4 DIBASIC ANHYDROUS [Suspect]
     Indication: COLONOSCOPY
     Dosage: ;PO
     Route: 048
     Dates: start: 20070412
  2. PROVENTIL /00139501/ [Concomitant]
  3. BENICAR HCT [Concomitant]
  4. SINGULAIR [Concomitant]

REACTIONS (5)
  - ACUTE PHOSPHATE NEPHROPATHY [None]
  - RENAL FAILURE [None]
  - DYSGEUSIA [None]
  - NEPHROPATHY [None]
  - DIARRHOEA [None]
